FAERS Safety Report 5475878-3 (Version None)
Quarter: 2007Q4

REPORT INFORMATION
  Report Type: 
  Country: None (occurrence: None)
  Receive Date: 20071003
  Receipt Date: 20070928
  Transmission Date: 20080405
  Serious: Yes (Hospitalization)
  Sender: FDA-Public Use
  Company Number: US-BRISTOL-MYERS SQUIBB COMPANY-13923636

PATIENT
  Age: 68 Year
  Sex: Male

DRUGS (6)
  1. PRAVASTATIN SODIUM [Suspect]
  2. FERROUS SULFATE TAB [Concomitant]
  3. VITAMIN B-12 [Concomitant]
  4. MULTI-VITAMIN [Concomitant]
  5. LOTREL [Concomitant]
  6. LYRICA [Concomitant]

REACTIONS (1)
  - SURGERY [None]
